FAERS Safety Report 16192759 (Version 2)
Quarter: 2019Q2

REPORT INFORMATION
  Report Type: Spontaneous
  Country: US (occurrence: US)
  Receive Date: 20190412
  Receipt Date: 20190627
  Transmission Date: 20190711
  Serious: Yes (Hospitalization, Other)
  Sender: FDA-Public Use
  Company Number: US-ASTRAZENECA-2019SE53076

PATIENT
  Age: 25280 Day
  Sex: Male
  Weight: 116.8 kg

DRUGS (28)
  1. HYDROCOD/ACETAM [Concomitant]
  2. NOVOLOG [Concomitant]
     Active Substance: INSULIN ASPART
  3. NITROGLYCERIN. [Concomitant]
     Active Substance: NITROGLYCERIN
  4. METFORMIN [Concomitant]
     Active Substance: METFORMIN HYDROCHLORIDE
  5. SUMATRIPTAN. [Concomitant]
     Active Substance: SUMATRIPTAN
  6. GABAPENTIN. [Concomitant]
     Active Substance: GABAPENTIN
  7. ZOFRAN [Concomitant]
     Active Substance: ONDANSETRON HYDROCHLORIDE
  8. TAMSULOSIN [Concomitant]
     Active Substance: TAMSULOSIN
  9. MONTELUKAST [Concomitant]
     Active Substance: MONTELUKAST SODIUM
  10. CIPROFLOXACIN. [Concomitant]
     Active Substance: CIPROFLOXACIN
  11. CARVEDILOL. [Concomitant]
     Active Substance: CARVEDILOL
  12. ONGLYZA [Suspect]
     Active Substance: SAXAGLIPTIN HYDROCHLORIDE
     Indication: TYPE 2 DIABETES MELLITUS
     Route: 048
     Dates: start: 20140303
  13. AMITRIPTYLINE [Concomitant]
     Active Substance: AMITRIPTYLINE
  14. LISINOPRIL. [Concomitant]
     Active Substance: LISINOPRIL
  15. METFORMIN [Concomitant]
     Active Substance: METFORMIN HYDROCHLORIDE
  16. AMOXICILLIN. [Concomitant]
     Active Substance: AMOXICILLIN
  17. ASPIRIN. [Concomitant]
     Active Substance: ASPIRIN
  18. TRANDOLAPRIL. [Concomitant]
     Active Substance: TRANDOLAPRIL
  19. AZITHROMYCIN ANHYDROUS. [Concomitant]
     Active Substance: AZITHROMYCIN ANHYDROUS
  20. HEPARIN [Concomitant]
     Active Substance: HEPARIN SODIUM
  21. GLIMEPIRIDE. [Concomitant]
     Active Substance: GLIMEPIRIDE
  22. MORPHINE [Concomitant]
     Active Substance: MORPHINE
  23. TYLENOL [Concomitant]
     Active Substance: ACETAMINOPHEN
  24. ONGLYZA [Suspect]
     Active Substance: SAXAGLIPTIN HYDROCHLORIDE
     Indication: TYPE 2 DIABETES MELLITUS
     Route: 048
     Dates: start: 20140303, end: 20180623
  25. PRAVASTATIN. [Concomitant]
     Active Substance: PRAVASTATIN
  26. CEFDINIR. [Concomitant]
     Active Substance: CEFDINIR
  27. ROSUVASTATIN. [Concomitant]
     Active Substance: ROSUVASTATIN
  28. KETOCONAZOLE. [Concomitant]
     Active Substance: KETOCONAZOLE

REACTIONS (4)
  - Acute myocardial infarction [Unknown]
  - Cardiac failure congestive [Unknown]
  - Myocardial infarction [Unknown]
  - Cardiac failure [Unknown]

NARRATIVE: CASE EVENT DATE: 20170221
